FAERS Safety Report 7109935-2 (Version None)
Quarter: 2010Q4

REPORT INFORMATION
  Report Type: 
  Country: None (occurrence: None)
  Receive Date: 20101118
  Receipt Date: 20101104
  Transmission Date: 20110411
  Serious: Yes (Hospitalization)
  Sender: FDA-Public Use
  Company Number: JP-GENZYME-FLUD-1000363

PATIENT
  Age: 69 Year
  Sex: Male

DRUGS (3)
  1. FLUDARA [Suspect]
     Indication: B-CELL LYMPHOMA
     Dosage: UNK, UNK
     Route: 065
     Dates: start: 20080701
  2. RITUXIMAB [Suspect]
     Indication: B-CELL LYMPHOMA
     Dosage: UNK
     Route: 065
     Dates: start: 20080701
  3. ACYCLOVIR [Concomitant]
     Indication: PROPHYLAXIS
     Dosage: UNK
     Route: 048
     Dates: start: 20080701, end: 20090801

REACTIONS (6)
  - ABDOMINAL PAIN [None]
  - CHOLANGITIS [None]
  - DERMATITIS BULLOUS [None]
  - HEPATIC FUNCTION ABNORMAL [None]
  - NEURALGIA [None]
  - PYREXIA [None]
